FAERS Safety Report 25297969 (Version 4)
Quarter: 2025Q4

REPORT INFORMATION
  Report Type: Report from Study
  Country: US (occurrence: US)
  Receive Date: 20250512
  Receipt Date: 20251005
  Transmission Date: 20260118
  Serious: No
  Sender: AIMMUNE
  Company Number: US-AIMMUNE THERAPEUTICS, INC.-2025AIMT00415

PATIENT

DRUGS (23)
  1. VOWST [Suspect]
     Active Substance: DONOR HUMAN STOOL SPORES (ETHANOL TREATED)
     Indication: Clostridium difficile infection
     Dosage: UNK
     Route: 048
     Dates: start: 20250414, end: 20250416
  2. VOWST [Suspect]
     Active Substance: DONOR HUMAN STOOL SPORES (ETHANOL TREATED)
     Dosage: UNK, ONCE LAST DOSE PRIOR TO EVENT
     Route: 048
     Dates: start: 20250416, end: 20250416
  3. GENTAMICIN [Concomitant]
     Active Substance: GENTAMICIN
     Indication: Urinary tract infection
     Dosage: UNK
     Route: 043
  4. WELLBUTRIN XL [Concomitant]
     Active Substance: BUPROPION HYDROCHLORIDE
     Indication: Depression
     Dosage: 300 MG, 1X/DAY
     Route: 048
     Dates: start: 20250225
  5. ZYRTEC [Concomitant]
     Active Substance: CETIRIZINE HYDROCHLORIDE
     Indication: Product used for unknown indication
     Dosage: 10 MG, 1X/DAY
     Route: 048
     Dates: start: 20200526
  6. KLONOPIN [Concomitant]
     Active Substance: CLONAZEPAM
     Indication: Product used for unknown indication
     Dosage: 0.5 MG, 2X/DAY
     Route: 048
     Dates: start: 20250303
  7. TRUSOPT [Concomitant]
     Active Substance: DORZOLAMIDE HYDROCHLORIDE
     Indication: Product used for unknown indication
     Dosage: 2% BOTH EYES
     Route: 031
     Dates: start: 20240125
  8. CYMBALTA [Concomitant]
     Active Substance: DULOXETINE HYDROCHLORIDE
     Indication: Depression
     Dosage: 60 MG, 1X/DAY
     Route: 048
     Dates: start: 20240807
  9. EPIPEN [Concomitant]
     Active Substance: EPINEPHRINE
     Indication: Anaphylactic reaction
     Dosage: 0.3 ML, AS NEEDED (INTO THE SHOULDER, THIGH OR BUTTOCKS)
     Route: 030
     Dates: start: 20240124
  10. ERGOCALCIFEROL [Concomitant]
     Active Substance: ERGOCALCIFEROL
     Indication: Product used for unknown indication
     Dosage: 1.250 MCG (50 000 UNITS) 1X/WEEK
     Route: 048
     Dates: start: 20241122
  11. ESTRACE [Concomitant]
     Active Substance: ESTRADIOL
     Indication: Product used for unknown indication
     Dosage: 0.01 % 0.5 GRAMS 3X/WEEK
     Route: 067
     Dates: start: 20250228
  12. ZETIA [Concomitant]
     Active Substance: EZETIMIBE
     Indication: Product used for unknown indication
     Dosage: 10 MG, 1X/DAY
     Route: 048
     Dates: start: 20250211
  13. FERROUS SULFATE [Concomitant]
     Active Substance: FERROUS SULFATE
     Indication: Product used for unknown indication
     Dosage: 325 MG (65 MG IRON), 2X/DAY WITH MEALS
     Route: 048
     Dates: start: 20240716
  14. ADVAIR HFA [Concomitant]
     Active Substance: FLUTICASONE PROPIONATE\SALMETEROL XINAFOATE
     Indication: Product used for unknown indication
     Dosage: 250-50 MCG/DOSE, 1 PUFFS 2X/DAY
     Dates: start: 20240829, end: 20250509
  15. NEURONTIN [Concomitant]
     Active Substance: GABAPENTIN
     Indication: Product used for unknown indication
     Dosage: 900 MG, 1X/DAY AT BEDTIME
     Route: 048
     Dates: start: 20241111
  16. XALATAN [Concomitant]
     Active Substance: LATANOPROST
     Indication: Product used for unknown indication
     Dosage: 0.005% 1 DROP INTO THE LEFT EYE EVERY NIGHT
     Route: 047
     Dates: start: 20230727
  17. SYNTHROID [Concomitant]
     Active Substance: LEVOTHYROXINE SODIUM
     Indication: Thyroid disorder
     Dosage: 5- MCG 1XDAY
     Route: 048
     Dates: start: 20241122
  18. RESTASIS [Concomitant]
     Active Substance: CYCLOSPORINE
     Indication: Product used for unknown indication
     Dosage: 1 DROP INTO BOTH EYES 2X/DAY
     Route: 047
     Dates: start: 20210730
  19. VALTREX [Concomitant]
     Active Substance: VALACYCLOVIR HYDROCHLORIDE
     Indication: Product used for unknown indication
     Dosage: 500 MG, 1X/DAY
     Route: 048
     Dates: start: 20241209
  20. PREVACID [Concomitant]
     Active Substance: LANSOPRAZOLE
     Indication: Product used for unknown indication
     Dosage: 30 MG, 1X/DAY
     Route: 048
     Dates: start: 20250505
  21. HIPREX [METHENAMINE HIPPURATE] [Concomitant]
     Indication: Infection prophylaxis
     Dosage: 1 G, 2X/DAY
     Route: 048
     Dates: start: 20250223, end: 20250509
  22. HIPREX [METHENAMINE HIPPURATE] [Concomitant]
     Indication: Klebsiella urinary tract infection
     Dosage: 1 G, 2X/DAY WITH MEALS FOR 10 DAYS
     Route: 048
     Dates: start: 20250505, end: 20250515
  23. MIRABEGRON [Concomitant]
     Active Substance: MIRABEGRON
     Indication: Bladder disorder

REACTIONS (9)
  - Klebsiella urinary tract infection [Unknown]
  - Dysuria [Unknown]
  - Bladder spasm [Unknown]
  - Pollakiuria [Unknown]
  - Abdominal tenderness [Unknown]
  - Dairy intolerance [Not Recovered/Not Resolved]
  - Carbohydrate intolerance [Not Recovered/Not Resolved]
  - Food intolerance [Not Recovered/Not Resolved]
  - Diarrhoea [Unknown]

NARRATIVE: CASE EVENT DATE: 20250414
